FAERS Safety Report 21488277 (Version 1)
Quarter: 2022Q4

REPORT INFORMATION
  Report Type: Report from Study
  Country: US (occurrence: US)
  Receive Date: 20221020
  Receipt Date: 20221020
  Transmission Date: 20230112
  Serious: Yes (Other)
  Sender: FDA-Public Use
  Company Number: US-ABBVIE-22K-163-4535089-00

PATIENT
  Sex: Female

DRUGS (2)
  1. SKYRIZI [Suspect]
     Active Substance: RISANKIZUMAB-RZAA
     Indication: Psoriasis
     Route: 058
  2. SKYRIZI [Suspect]
     Active Substance: RISANKIZUMAB-RZAA
     Route: 058

REACTIONS (11)
  - Loss of consciousness [Unknown]
  - Chest discomfort [Recovering/Resolving]
  - Heart rate increased [Recovered/Resolved with Sequelae]
  - Bone pain [Recovering/Resolving]
  - Chest pain [Recovering/Resolving]
  - Discomfort [Recovering/Resolving]
  - Dizziness [Unknown]
  - Abdominal discomfort [Unknown]
  - Dysuria [Recovering/Resolving]
  - Nausea [Unknown]
  - Dehydration [Recovering/Resolving]
